FAERS Safety Report 6259851-3 (Version None)
Quarter: 2009Q3

REPORT INFORMATION
  Report Type: 
  Country: None (occurrence: None)
  Receive Date: 20090706
  Receipt Date: 20090706
  Transmission Date: 20100115
  Serious: Yes (Hospitalization)
  Sender: FDA-Public Use
  Company Number: None

PATIENT
  Age: 66 Year
  Sex: Male
  Weight: 113.3993 kg

DRUGS (1)
  1. PLAVIX [Suspect]
     Indication: DEEP VEIN THROMBOSIS
     Dosage: ONE DAILY PO
     Route: 048
     Dates: start: 20030702, end: 20090622

REACTIONS (1)
  - EPISTAXIS [None]
